FAERS Safety Report 14505670 (Version 1)
Quarter: 2018Q1

REPORT INFORMATION
  Report Type: Spontaneous
  Country: CN (occurrence: CN)
  Receive Date: 20180208
  Receipt Date: 20180208
  Transmission Date: 20180509
  Serious: Yes (Disabling)
  Sender: FDA-Public Use
  Company Number: CN-ABBVIE-18P-035-2250136-00

PATIENT
  Age: 38 Year
  Sex: Male

DRUGS (2)
  1. VALPROATE SODIUM. [Suspect]
     Active Substance: VALPROATE SODIUM
     Indication: EPILEPSY
     Route: 040
     Dates: start: 20171104, end: 20171125
  2. VALPROATE SODIUM. [Suspect]
     Active Substance: VALPROATE SODIUM
     Route: 042

REACTIONS (1)
  - Hepatic enzyme increased [Unknown]

NARRATIVE: CASE EVENT DATE: 20171111
